FAERS Safety Report 10680112 (Version 3)
Quarter: 2015Q1

REPORT INFORMATION
  Report Type: Report from Study
  Country: BR (occurrence: BR)
  Receive Date: 20141229
  Receipt Date: 20150121
  Transmission Date: 20150720
  Serious: Yes (Other)
  Sender: FDA-Public Use
  Company Number: PHHY2014BR168928

PATIENT
  Sex: Female

DRUGS (5)
  1. OLANZAPINE. [Suspect]
     Active Substance: OLANZAPINE
     Indication: DEMENTIA ALZHEIMER^S TYPE
     Dosage: 1 DF, QD
     Route: 065
     Dates: start: 201209
  2. EXELON PATCH [Suspect]
     Active Substance: RIVASTIGMINE
     Indication: DEMENTIA ALZHEIMER^S TYPE
     Dosage: 4.6 MG (PATCH 5CM2), UNK
     Route: 062
     Dates: start: 201207, end: 201212
  3. FORASEQ [Suspect]
     Active Substance: BUDESONIDE\FORMOTEROL FUMARATE
     Indication: PROPHYLAXIS
     Dosage: 1 DF, BID (IN WINTER AND 1 DF QD IN THE SUMMER)
     Route: 065
  4. FORASEQ [Suspect]
     Active Substance: BUDESONIDE\FORMOTEROL FUMARATE
     Dosage: 1 DF, BID (IN WINTER AND 1 DF QD IN THE SUMMER)
     Route: 065
  5. OLANZAPINE. [Suspect]
     Active Substance: OLANZAPINE
     Dosage: 2 DF, QD (1 DF IN THE MORNING, 0.5 DF IN THE AFTERNOON AND 0.5 DF AT NIGHT)
     Route: 065

REACTIONS (5)
  - Bronchopneumonia [Recovered/Resolved]
  - Speech disorder [Recovered/Resolved]
  - Hypokinesia [Recovered/Resolved]
  - Device malfunction [Unknown]
  - Dementia Alzheimer^s type [Unknown]
